FAERS Safety Report 8555757-5 (Version None)
Quarter: 2012Q3

REPORT INFORMATION
  Report Type: 
  Country: None (occurrence: None)
  Receive Date: 20120801
  Receipt Date: 20120723
  Transmission Date: 20120928
  Serious: No
  Sender: FDA-Public Use
  Company Number: US-009507513-1207USA009767

PATIENT

DRUGS (1)
  1. ZOCOR [Suspect]
     Dosage: 80 MG, QD
     Route: 048

REACTIONS (2)
  - MUSCLE ENZYME INCREASED [None]
  - HEPATIC ENZYME INCREASED [None]
